FAERS Safety Report 8287591-8 (Version None)
Quarter: 2012Q2

REPORT INFORMATION
  Report Type: 
  Country: None (occurrence: None)
  Receive Date: 20120416
  Receipt Date: 20120409
  Transmission Date: 20120825
  Serious: Yes (Other)
  Sender: FDA-Public Use
  Company Number: PHHY2012JP030679

PATIENT

DRUGS (1)
  1. RASILEZ [Suspect]
     Route: 048

REACTIONS (3)
  - APHAGIA [None]
  - MOVEMENT DISORDER [None]
  - WEIGHT DECREASED [None]
